FAERS Safety Report 15640204 (Version 1)
Quarter: 2018Q4

REPORT INFORMATION
  Report Type: Spontaneous
  Country: US (occurrence: US)
  Receive Date: 20181120
  Receipt Date: 20181120
  Transmission Date: 20190205
  Serious: Yes (Other)
  Sender: FDA-Public Use
  Company Number: US-TEVA-2017-US-826269

PATIENT
  Age: 14 Year
  Sex: Male

DRUGS (1)
  1. AMANTADINE. [Suspect]
     Active Substance: AMANTADINE HYDROCHLORIDE
     Indication: MEDULLOBLASTOMA
     Route: 048

REACTIONS (2)
  - Corneal oedema [Recovered/Resolved]
  - Toxicity to various agents [Recovered/Resolved]
